FAERS Safety Report 20170169 (Version 1)
Quarter: 2021Q4

REPORT INFORMATION
  Report Type: Other
  Country: US (occurrence: US)
  Receive Date: 20211210
  Receipt Date: 20211210
  Transmission Date: 20220303
  Serious: No
  Sender: FDA-Public Use
  Company Number: US-SLATE RUN PHARMACEUTICALS-21US000756

PATIENT

DRUGS (1)
  1. TETRABENAZINE [Suspect]
     Active Substance: TETRABENAZINE
     Indication: Product used for unknown indication
     Dosage: UNK

REACTIONS (5)
  - Drug ineffective [Unknown]
  - Abnormal behaviour [Unknown]
  - Depressed mood [Unknown]
  - Decreased interest [Unknown]
  - Tremor [Unknown]
